FAERS Safety Report 11617165 (Version 1)
Quarter: 2015Q4

REPORT INFORMATION
  Report Type: Report from Study
  Country: US (occurrence: US)
  Receive Date: 20151009
  Receipt Date: 20151009
  Transmission Date: 20160304
  Serious: Yes (Other)
  Sender: FDA-Public Use
  Company Number: US-AMGEN-USASL2015104225

PATIENT
  Age: 60 Year
  Sex: Female

DRUGS (1)
  1. ENBREL [Suspect]
     Active Substance: ETANERCEPT
     Indication: RHEUMATOID ARTHRITIS
     Dosage: 50 MG, QWK
     Route: 065
     Dates: start: 2005

REACTIONS (13)
  - Joint arthroplasty [Unknown]
  - Arthralgia [Unknown]
  - Synovial disorder [Unknown]
  - Joint swelling [Unknown]
  - Foot deformity [Unknown]
  - Lower limb fracture [Unknown]
  - Pain [Unknown]
  - Ankle deformity [Unknown]
  - Paronychia [Unknown]
  - Mobility decreased [Unknown]
  - Joint fluid drainage [Unknown]
  - Gait disturbance [Unknown]
  - Musculoskeletal disorder [Unknown]

NARRATIVE: CASE EVENT DATE: 2008
